FAERS Safety Report 24201743 (Version 1)
Quarter: 2024Q3

REPORT INFORMATION
  Report Type: Spontaneous
  Country: DE (occurrence: DE)
  Receive Date: 20240812
  Receipt Date: 20240812
  Transmission Date: 20241016
  Serious: Yes (Other)
  Sender: NOVARTIS
  Company Number: DE-EMBRYOTOX-202303640

PATIENT
  Age: 1 Day
  Sex: Male
  Weight: 2.49 kg

DRUGS (3)
  1. OXCARBAZEPINE [Suspect]
     Active Substance: OXCARBAZEPINE
     Indication: Foetal exposure during pregnancy
     Dosage: 2400 MG, QD, 2400 [MG/D (2 X 1200) ] 2 SEPARATED DOSES (TRANS PLACENTAL)
     Route: 048
     Dates: start: 20220824, end: 20230424
  2. BRIVARACETAM [Suspect]
     Active Substance: BRIVARACETAM
     Indication: Foetal exposure during pregnancy
     Dosage: UNK, 200 [MG/D (BIS 100) ]/ INITIAL 100MG/D, INCREASED TO 200MG/D FROM WEEK 29 (TRANS PLACENTAL),
     Route: 048
     Dates: start: 20220824, end: 20230424
  3. CLOBAZAM [Suspect]
     Active Substance: CLOBAZAM
     Indication: Foetal exposure during pregnancy
     Dosage: UNK, 10 [MG/D (BIS BEI BEDARF) ]/ INITIAL ON DEMAND, DAILY FROM WEEK 21 (TRANS PLACENTAL)
     Route: 048
     Dates: start: 20220824, end: 20230424

REACTIONS (2)
  - Neonatal respiratory distress syndrome [Recovered/Resolved]
  - Foetal exposure during pregnancy [Unknown]

NARRATIVE: CASE EVENT DATE: 20230401
